FAERS Safety Report 7091415-4 (Version None)
Quarter: 2010Q4

REPORT INFORMATION
  Report Type: 
  Country: None (occurrence: None)
  Receive Date: 20101105
  Receipt Date: 20101105
  Transmission Date: 20110411
  Serious: Yes (Other)
  Sender: FDA-Public Use
  Company Number: None

PATIENT
  Age: 6 Month
  Sex: Male
  Weight: 9.5255 kg

DRUGS (1)
  1. HOMEOPATHIC TEETHING TABLETS N/A HYLANDS [Suspect]
     Indication: TEETHING
     Dosage: 2 EVERY 4 HOURS PO
     Route: 048
     Dates: start: 20100823, end: 20101004

REACTIONS (2)
  - CONVULSION [None]
  - PRODUCT QUALITY ISSUE [None]
